FAERS Safety Report 21864675 (Version 1)
Quarter: 2023Q1

REPORT INFORMATION
  Report Type: Report from Study
  Country: US (occurrence: US)
  Receive Date: 20230116
  Receipt Date: 20230116
  Transmission Date: 20230417
  Serious: No
  Sender: FDA-Public Use
  Company Number: US-ABBVIE-4240395

PATIENT
  Sex: Female

DRUGS (1)
  1. HUMIRA [Suspect]
     Active Substance: ADALIMUMAB
     Indication: Rheumatoid arthritis
     Route: 058

REACTIONS (6)
  - Chronic obstructive pulmonary disease [Unknown]
  - Urinary tract infection [Unknown]
  - Bacterial infection [Unknown]
  - Diarrhoea [Unknown]
  - Vomiting [Unknown]
  - Nasopharyngitis [Unknown]
